FAERS Safety Report 11803065 (Version 1)
Quarter: 2015Q4

REPORT INFORMATION
  Report Type: Spontaneous
  Country: US (occurrence: US)
  Receive Date: 20151204
  Receipt Date: 20151204
  Transmission Date: 20160305
  Serious: No
  Sender: FDA-Public Use
  Company Number: US-BIOGENIDEC-2015BI159385

PATIENT
  Sex: Female

DRUGS (1)
  1. TECFIDERA [Suspect]
     Active Substance: DIMETHYL FUMARATE
     Indication: MULTIPLE SCLEROSIS

REACTIONS (7)
  - Alopecia [Unknown]
  - Onychoclasis [Unknown]
  - Postmenopausal haemorrhage [Unknown]
  - Liver function test abnormal [Unknown]
  - Burning sensation [Unknown]
  - Thyroid disorder [Unknown]
  - Eye disorder [Unknown]
